FAERS Safety Report 5025538-8 (Version None)
Quarter: 2006Q2

REPORT INFORMATION
  Report Type: 
  Country: None (occurrence: None)
  Receive Date: 20060607
  Receipt Date: 20060529
  Transmission Date: 20061013
  Serious: Yes (Other)
  Sender: FDA-Public Use
  Company Number: JP200605006044

PATIENT
  Age: 59 Year
  Sex: Male

DRUGS (2)
  1. GEMZAR [Suspect]
     Indication: PANCREATIC CARCINOMA
     Dosage: 400 MG, OTHER; INTRAVENOUS
     Route: 042
  2. THERAPEUTIC    RADIOPHARMACEUTICALS [Concomitant]

REACTIONS (4)
  - DIZZINESS [None]
  - DYSSTASIA [None]
  - EYE DISORDER [None]
  - NAUSEA [None]
